FAERS Safety Report 7197428-6 (Version None)
Quarter: 2010Q4

REPORT INFORMATION
  Report Type: 
  Country: None (occurrence: None)
  Receive Date: 20101209
  Receipt Date: 20101203
  Transmission Date: 20110411
  Serious: Yes (Other)
  Sender: FDA-Public Use
  Company Number: A0897611A

PATIENT
  Age: 69 Year
  Sex: Female

DRUGS (1)
  1. SODIUM FLUORIDE F 18 [Suspect]
     Indication: DENTAL CARE
     Dosage: DENTAL
     Route: 004
     Dates: start: 20101101, end: 20101130

REACTIONS (2)
  - CHOKING [None]
  - ORAL MUCOSAL EXFOLIATION [None]
